FAERS Safety Report 8913803 (Version 2)
Quarter: 2013Q1

REPORT INFORMATION
  Report Type: Spontaneous
  Country: US (occurrence: None)
  Receive Date: 20120507
  Receipt Date: 20121206
  Transmission Date: 20140127
  Serious: Yes (Other)
  Sender: FDA-Public Use
  Company Number: 2009003162

PATIENT
  Age: 65 Year
  Sex: Male
  Weight: 92 kg

DRUGS (9)
  1. TARCEVA (ERLOTINIB HYDROCHLORIDE) TABLET [Suspect]
     Indication: NON-SMALL CELL LUNG CANCER
     Dosage: 150 MG, UID/QD, ORAL
     Route: 048
     Dates: start: 20090926, end: 20091005
  2. HCTZ (HYDROCHLORTHIAZIDE) [Concomitant]
  3. VITAMINS [Concomitant]
  4. PLAVIX (CLOPIDOGREL SULFATE) [Concomitant]
  5. MAGNESIUM (MAGNESIUM) [Concomitant]
  6. POTASSIUM (POTASSIUM) [Concomitant]
  7. CALCIUM (CALCIUM) [Concomitant]
  8. FEXOFENADINE [Concomitant]
  9. PANTUPRAZOLE (PANTUPRAZOLE) [Concomitant]

REACTIONS (3)
  - Face oedema [None]
  - Erythema [None]
  - Blood pressure decreased [None]
